FAERS Safety Report 23784498 (Version 1)
Quarter: 2024Q2

REPORT INFORMATION
  Report Type: Spontaneous
  Country: ES (occurrence: ES)
  Receive Date: 20240425
  Receipt Date: 20240425
  Transmission Date: 20240716
  Serious: Yes (Other)
  Sender: FDA-Public Use
  Company Number: None

PATIENT
  Age: 14 Year
  Sex: Male
  Weight: 63 kg

DRUGS (4)
  1. METHYLPHENIDATE [Interacting]
     Active Substance: METHYLPHENIDATE
     Indication: Attention deficit hyperactivity disorder
     Dosage: METILFENIDATO (3773A)
     Route: 048
     Dates: start: 20211119, end: 20240219
  2. FLUOXETINE [Interacting]
     Active Substance: FLUOXETINE HYDROCHLORIDE
     Indication: Depression
     Dosage: FLUOXETINA (2331A)
     Route: 048
     Dates: start: 20240219, end: 20240224
  3. ARIPIPRAZOLE [Interacting]
     Active Substance: ARIPIPRAZOLE
     Indication: Adjustment disorder with disturbance of conduct
     Dosage: ARIPIPRAZOL (2933A)
     Route: 048
     Dates: start: 20221214, end: 20240305
  4. BRIVARACETAM [Interacting]
     Active Substance: BRIVARACETAM
     Indication: Epilepsy
     Dosage: BRIVARACETAM (9163A)
     Route: 048
     Dates: start: 20221013

REACTIONS (3)
  - Somnolence [Recovered/Resolved]
  - Salivary hypersecretion [Recovered/Resolved]
  - Bradyphrenia [Recovered/Resolved]

NARRATIVE: CASE EVENT DATE: 20240219
